FAERS Safety Report 10540381 (Version 1)
Quarter: 2014Q4

REPORT INFORMATION
  Report Type: Spontaneous
  Country: US (occurrence: None)
  Receive Date: 20141023
  Receipt Date: 20141023
  Transmission Date: 20150529
  Serious: Yes (Hospitalization)
  Sender: FDA-Public Use
  Company Number: None

PATIENT
  Age: 45 Year
  Sex: Female
  Weight: 82.4 kg

DRUGS (1)
  1. CLOZAPINE 100 MG TABLETS NOVARTIS PHARMACEUTICALS [Suspect]
     Active Substance: CLOZAPINE
     Indication: SCHIZOPHRENIA
     Dosage: GREATER THAN 6 YEARS
     Route: 048

REACTIONS (4)
  - Pulmonary embolism [None]
  - Suicidal ideation [None]
  - Mental disorder [None]
  - Paranoia [None]

NARRATIVE: CASE EVENT DATE: 20140930
